FAERS Safety Report 10137147 (Version 1)
Quarter: 2014Q2

REPORT INFORMATION
  Report Type: Spontaneous
  Country: US (occurrence: US)
  Receive Date: 20140429
  Receipt Date: 20140429
  Transmission Date: 20141212
  Serious: Yes (Other)
  Sender: FDA-Public Use
  Company Number: US-ABBVIE-14P-163-1219776-00

PATIENT
  Sex: Male
  Weight: 74.91 kg

DRUGS (14)
  1. ANDROGEL [Suspect]
     Indication: BLOOD TESTOSTERONE DECREASED
     Dosage: 2 PUMPS
     Route: 061
     Dates: start: 2011
  2. CELEBREX [Suspect]
     Indication: ARTHRITIS
     Dates: start: 2013
  3. LYRICA [Concomitant]
     Indication: FIBROMYALGIA
  4. DILAUDID [Concomitant]
     Indication: BACK PAIN
  5. CLONIDINE [Concomitant]
     Indication: BACK PAIN
  6. BACLOFEN [Concomitant]
     Indication: BACK PAIN
  7. ACIPHEX [Concomitant]
     Indication: COLITIS ULCERATIVE
  8. DELZICOL [Concomitant]
     Indication: COLITIS ULCERATIVE
  9. WELLBUTRIN [Concomitant]
     Indication: DEPRESSION
  10. AMITRIPTYLINE [Concomitant]
     Indication: DEPRESSION
  11. SEROQUEL [Concomitant]
     Indication: SOMNAMBULISM
  12. XANAX [Concomitant]
     Indication: ANXIETY
  13. VITAMIN D [Concomitant]
     Indication: VITAMIN SUPPLEMENTATION
  14. VITAMIN B12 [Concomitant]
     Indication: VITAMIN SUPPLEMENTATION
     Route: 050

REACTIONS (2)
  - Red blood cell count increased [Not Recovered/Not Resolved]
  - Haemorrhagic diathesis [Not Recovered/Not Resolved]
